FAERS Safety Report 16652602 (Version 1)
Quarter: 2019Q3

REPORT INFORMATION
  Report Type: Spontaneous
  Country: US (occurrence: US)
  Receive Date: 20190731
  Receipt Date: 20190731
  Transmission Date: 20191004
  Serious: Yes (Hospitalization)
  Sender: FDA-Public Use
  Company Number: None

PATIENT
  Age: 64 Year
  Sex: Female

DRUGS (6)
  1. FLUTICASONE SPR 50 MCG [Concomitant]
  2. ONDANSETRON TAB 8 MG [Concomitant]
  3. CAPECITABINE. [Suspect]
     Active Substance: CAPECITABINE
     Indication: VULVOVAGINITIS
     Route: 048
     Dates: start: 20190423
  4. ATROVENT HFA AER 17 MCG [Concomitant]
  5. AMOX/K CLAV TAB 500-125 [Concomitant]
  6. CAPECITABINE. [Suspect]
     Active Substance: CAPECITABINE
     Indication: VULVOVAGINITIS
     Route: 048
     Dates: start: 20190423

REACTIONS (3)
  - Medical procedure [None]
  - Skin exfoliation [None]
  - Therapy cessation [None]
